FAERS Safety Report 19955470 (Version 2)
Quarter: 2023Q4

REPORT INFORMATION
  Report Type: Report from Study
  Country: JP (occurrence: JP)
  Receive Date: 20211013
  Receipt Date: 20231120
  Transmission Date: 20240109
  Serious: Yes (Hospitalization)
  Sender: FDA-Public Use
  Company Number: JP-SA-2021SA273201

PATIENT
  Age: 80 Year
  Sex: Female
  Weight: 44.1 kg

DRUGS (16)
  1. SARILUMAB [Suspect]
     Active Substance: SARILUMAB
     Indication: Rheumatoid arthritis
     Dosage: 200 MG, QOW
     Route: 058
     Dates: start: 20210713, end: 20210727
  2. PREDONINE [Concomitant]
     Active Substance: PREDNISOLONE
     Indication: Rheumatoid arthritis
     Dosage: 40 MG, TID
     Route: 048
     Dates: start: 20210709, end: 20210715
  3. PREDONINE [Concomitant]
     Active Substance: PREDNISOLONE
     Dosage: 30 MG, TID
     Route: 048
     Dates: start: 20210716, end: 20210723
  4. PREDONINE [Concomitant]
     Active Substance: PREDNISOLONE
     Dosage: 25 MG, TID
     Route: 048
     Dates: start: 20210723, end: 20210729
  5. PREDONINE [Concomitant]
     Active Substance: PREDNISOLONE
     Dosage: 2 DF (20 MG), BID (MORNING AND EVENING)
     Route: 048
     Dates: start: 20210730, end: 20210805
  6. RABEPRAZOLE SODIUM [Concomitant]
     Active Substance: RABEPRAZOLE SODIUM
     Indication: Prophylaxis against gastrointestinal ulcer
     Dosage: 1 DF, QD (MORNING)
     Route: 048
     Dates: start: 20210702
  7. SULFAMETHOXAZOLE\TRIMETHOPRIM [Concomitant]
     Active Substance: SULFAMETHOXAZOLE\TRIMETHOPRIM
     Indication: Infection prophylaxis
     Dosage: 0.5 DF, TIW
     Route: 048
     Dates: start: 20210702
  8. ALFACALCIDOL [Concomitant]
     Active Substance: ALFACALCIDOL
     Indication: Osteoporosis prophylaxis
     Dosage: 1 DF, QD (MORNING)
     Route: 048
     Dates: start: 20210428
  9. ALENDRONATE [Concomitant]
     Active Substance: ALENDRONATE SODIUM
     Indication: Osteoporosis prophylaxis
     Dosage: 1 DF, QW
     Route: 048
     Dates: start: 20210510
  10. LOSARTAN POTASSIUM [Concomitant]
     Active Substance: LOSARTAN POTASSIUM
     Indication: Hypertension
     Dosage: 2 DF, QD (EVENING)
     Route: 048
     Dates: start: 20210726
  11. NIFEDIPINE [Concomitant]
     Active Substance: NIFEDIPINE
     Indication: Hypertension
     Dosage: 1 DF, BID (MORNING AND EVENING)
     Route: 048
     Dates: start: 20210708
  12. ISCOTIN [Concomitant]
     Active Substance: ISONIAZID
     Indication: Antibiotic prophylaxis
     Dosage: 3 TABLETS, QD (MORNING)
     Route: 048
     Dates: start: 20210726
  13. PYRIDOXAL 5-PHOSPHATE MONOHYDRATE [Concomitant]
     Indication: Nervous system disorder prophylaxis
     Dosage: 1 TABLET, QD (MORNING)
     Route: 048
     Dates: start: 20210430
  14. MIROGABALIN BESYLATE [Concomitant]
     Active Substance: MIROGABALIN BESYLATE
     Indication: Vascular pain
     Dosage: 1 DF, HS
     Route: 048
     Dates: start: 20210729
  15. ATORVASTATIN CALCIUM TRIHYDRATE [Concomitant]
     Active Substance: ATORVASTATIN CALCIUM TRIHYDRATE
     Indication: Dyslipidaemia
     Dosage: 1 TABLET (5 MG), QD (MORNING)
     Route: 048
     Dates: start: 20210727
  16. SULFASALAZINE [Concomitant]
     Active Substance: SULFASALAZINE
     Indication: Rheumatoid arthritis
     Dosage: 1000 MG, BID
     Route: 048
     Dates: start: 20210430, end: 20210723

REACTIONS (3)
  - Femur fracture [Recovering/Resolving]
  - Fall [Unknown]
  - Movement disorder [Unknown]

NARRATIVE: CASE EVENT DATE: 20210801
